FAERS Safety Report 12013216 (Version 1)
Quarter: 2016Q1

REPORT INFORMATION
  Report Type: Spontaneous
  Country: US (occurrence: US)
  Receive Date: 20160205
  Receipt Date: 20160205
  Transmission Date: 20160526
  Serious: No
  Sender: FDA-Public Use
  Company Number: US-ELI_LILLY_AND_COMPANY-US201602000959

PATIENT
  Age: 84 Year
  Sex: Male

DRUGS (2)
  1. PROZAC [Suspect]
     Active Substance: FLUOXETINE HYDROCHLORIDE
     Dosage: 80 MG, QD
     Route: 065
  2. PROZAC [Suspect]
     Active Substance: FLUOXETINE HYDROCHLORIDE
     Indication: PRODUCT USED FOR UNKNOWN INDICATION
     Dosage: 40 MG, QD
     Route: 065

REACTIONS (18)
  - Heart rate increased [Unknown]
  - Fall [Unknown]
  - Agitation [Unknown]
  - Gait disturbance [Unknown]
  - Logorrhoea [Unknown]
  - Back injury [Recovered/Resolved]
  - Abnormal dreams [Unknown]
  - Cardiac murmur [Unknown]
  - Back disorder [Unknown]
  - Fall [Recovered/Resolved]
  - Flatulence [Unknown]
  - Fatigue [Unknown]
  - Hepatic enzyme increased [Unknown]
  - Dizziness [Unknown]
  - Mass [Unknown]
  - Middle insomnia [Unknown]
  - Dyspepsia [Unknown]
  - Pruritus [Unknown]

NARRATIVE: CASE EVENT DATE: 201504
